FAERS Safety Report 17576915 (Version 1)
Quarter: 2020Q1

REPORT INFORMATION
  Report Type: Spontaneous
  Country: US (occurrence: US)
  Receive Date: 20200324
  Receipt Date: 20200324
  Transmission Date: 20200409
  Serious: No
  Sender: FDA-Public Use
  Company Number: US-ASTRAZENECA-2020SE39629

PATIENT
  Sex: Male

DRUGS (8)
  1. SYNAGIS [Suspect]
     Active Substance: PALIVIZUMAB
     Indication: CHRONIC RESPIRATORY FAILURE
     Route: 030
  2. TOPAMAX [Concomitant]
     Active Substance: TOPIRAMATE
  3. PHENOBARBITAL. [Concomitant]
     Active Substance: PHENOBARBITAL
  4. SYNAGIS [Suspect]
     Active Substance: PALIVIZUMAB
     Indication: OXYGEN THERAPY
     Route: 030
  5. MULTIVITAMINS [Concomitant]
     Active Substance: VITAMINS
  6. SYNAGIS [Suspect]
     Active Substance: PALIVIZUMAB
     Indication: HYPERCAPNIA
     Route: 030
  7. RANITIDINE HCL [Concomitant]
     Active Substance: RANITIDINE HYDROCHLORIDE
  8. KEPPRA [Concomitant]
     Active Substance: LEVETIRACETAM

REACTIONS (2)
  - Pyrexia [Unknown]
  - Malaise [Unknown]
